FAERS Safety Report 4750311-5 (Version None)
Quarter: 2005Q3

REPORT INFORMATION
  Report Type: 
  Country: None (occurrence: None)
  Receive Date: 20050818
  Receipt Date: 20050803
  Transmission Date: 20060218
  Serious: Yes (Congenital Anomaly, Other)
  Sender: FDA-Public Use
  Company Number: 2005EU001792

PATIENT
  Sex: 0

DRUGS (1)
  1. PROGRAF [Suspect]
     Indication: LIVER TRANSPLANT
     Dosage: TRANSPLACENTAL
     Route: 064
     Dates: start: 20041201

REACTIONS (3)
  - APNOEA [None]
  - DRUG EXPOSURE DURING PREGNANCY [None]
  - TRACHEO-OESOPHAGEAL FISTULA [None]
